FAERS Safety Report 4715461-8 (Version None)
Quarter: 2005Q3

REPORT INFORMATION
  Report Type: 
  Country: None (occurrence: None)
  Receive Date: 20050713
  Receipt Date: 20050701
  Transmission Date: 20060218
  Serious: Yes (Other)
  Sender: FDA-Public Use
  Company Number: 2005BH000656

PATIENT
  Age: 37 Year
  Sex: Female
  Weight: 79.8331 kg

DRUGS (2)
  1. SODIUM CITRATE [Suspect]
     Indication: BLOOD DONOR
     Dosage: ONCE; IV
     Route: 042
     Dates: start: 20050701, end: 20050701
  2. SODIUM CHLORIDE 0.9% [Suspect]
     Indication: BLOOD DONOR
     Dosage: ONCE; IV
     Route: 042
     Dates: start: 20050701, end: 20050701

REACTIONS (8)
  - CONVULSION [None]
  - MEDICAL DEVICE COMPLICATION [None]
  - NECK PAIN [None]
  - PAIN [None]
  - PHARYNGOLARYNGEAL PAIN [None]
  - PROCEDURAL COMPLICATION [None]
  - SYNCOPE [None]
  - VOMITING [None]
